FAERS Safety Report 19675639 (Version 19)
Quarter: 2023Q1

REPORT INFORMATION
  Report Type: Report from Study
  Country: US (occurrence: US)
  Receive Date: 20210809
  Receipt Date: 20230327
  Transmission Date: 20230418
  Serious: No
  Sender: FDA-Public Use
  Company Number: US-GLAXOSMITHKLINE-US2021AMR162177

PATIENT

DRUGS (1)
  1. BELANTAMAB MAFODOTIN [Suspect]
     Active Substance: BELANTAMAB MAFODOTIN
     Indication: Product used for unknown indication
     Dosage: UNK
     Dates: start: 20210708

REACTIONS (7)
  - Visual acuity reduced [Recovered/Resolved]
  - Keratopathy [Recovering/Resolving]
  - Night blindness [Not Recovered/Not Resolved]
  - Photophobia [Not Recovered/Not Resolved]
  - Dry eye [Recovered/Resolved]
  - Foreign body in eye [Recovered/Resolved]
  - Ocular toxicity [Unknown]

NARRATIVE: CASE EVENT DATE: 20210726
